FAERS Safety Report 6588678-8 (Version None)
Quarter: 2010Q1

REPORT INFORMATION
  Report Type: 
  Country: None (occurrence: None)
  Receive Date: 20100218
  Receipt Date: 20100203
  Transmission Date: 20100710
  Serious: Yes (Other)
  Sender: FDA-Public Use
  Company Number: US-ROCHE-685911

PATIENT
  Sex: Female
  Weight: 60.3 kg

DRUGS (3)
  1. AVASTIN [Suspect]
     Route: 042
  2. ZOMETA [Concomitant]
  3. ERBITUX [Concomitant]

REACTIONS (2)
  - HAEMORRHAGE [None]
  - SPEECH DISORDER [None]
